FAERS Safety Report 12900981 (Version 1)
Quarter: 2016Q4

REPORT INFORMATION
  Report Type: Spontaneous
  Country: FR (occurrence: FR)
  Receive Date: 20161101
  Receipt Date: 20161101
  Transmission Date: 20170207
  Serious: Yes (Hospitalization)
  Sender: FDA-Public Use
  Company Number: FR-SA-2016SA195909

PATIENT
  Age: 52 Year
  Sex: Male

DRUGS (9)
  1. PRINCI-B [Concomitant]
     Active Substance: CYANOCOBALAMIN\PYRIDOXINE HYDROCHLORIDE\THIAMINE
     Dates: start: 20160727, end: 20160804
  2. RIFATER [Suspect]
     Active Substance: ISONIAZID\PYRAZINAMIDE\RIFAMPIN
     Indication: TUBERCULOSIS
     Route: 048
     Dates: start: 20160727, end: 20160804
  3. ETHAMBUTOL [Suspect]
     Active Substance: ETHAMBUTOL HYDROCHLORIDE
     Indication: TUBERCULOSIS
     Dosage: STRENGTH:500 MG ?DOSE: 2/1 DAY
     Route: 048
     Dates: start: 20160727, end: 20160804
  4. PARACETAMOL [Concomitant]
     Active Substance: ACETAMINOPHEN
     Indication: PYREXIA
     Route: 042
     Dates: start: 20160727, end: 20160731
  5. DOLIPRANE [Suspect]
     Active Substance: ACETAMINOPHEN
     Dosage: STRENGTH: 500 MG?FREQUENCY:3/DAY IF REQUIRED
     Route: 048
     Dates: start: 20160731, end: 20160805
  6. FUNGIZONE [Suspect]
     Active Substance: AMPHOTERICIN B
     Dosage: DOSE: 1 SPOON MEASURE
     Route: 048
     Dates: start: 20160729, end: 20160805
  7. LOVENOX [Concomitant]
     Active Substance: ENOXAPARIN SODIUM
     Dates: start: 20160727
  8. PRIMPERAN [Concomitant]
     Active Substance: METOCLOPRAMIDE HYDROCHLORIDE
     Dates: start: 20160804
  9. VITAMIN K1 [Concomitant]
     Active Substance: PHYTONADIONE
     Dates: start: 20160806

REACTIONS (3)
  - Coagulation factor V level decreased [Recovering/Resolving]
  - Prothrombin time shortened [Recovering/Resolving]
  - Hepatitis [Recovering/Resolving]

NARRATIVE: CASE EVENT DATE: 201608
